FAERS Safety Report 22102944 (Version 2)
Quarter: 2023Q2

REPORT INFORMATION
  Report Type: Spontaneous
  Country: US (occurrence: US)
  Receive Date: 20230316
  Receipt Date: 20230403
  Transmission Date: 20230721
  Serious: No
  Sender: FDA-Public Use
  Company Number: US-LUPIN PHARMACEUTICALS INC.-2023-01954

PATIENT

DRUGS (5)
  1. ALBUTEROL SULFATE [Suspect]
     Active Substance: ALBUTEROL SULFATE
     Indication: Asthma
     Dosage: 2 PUFFS BY EVERY 4-6 HOURS AS NEEDED
     Dates: start: 20221113
  2. ALBUTEROL SULFATE [Suspect]
     Active Substance: ALBUTEROL SULFATE
     Indication: Bronchitis
     Dosage: UNK, 2 PUFFS EVERY 4 HOURS
     Dates: start: 20230205
  3. ALBUTEROL SULFATE [Suspect]
     Active Substance: ALBUTEROL SULFATE
     Dosage: 2 PUFFS BY EVERY 4-6 HOURS AS NEEDED
  4. ALBUTEROL SULFATE [Suspect]
     Active Substance: ALBUTEROL SULFATE
     Dosage: 2 PUFFS BY EVERY 4-6 HOURS AS NEEDED
  5. ALBUTEROL SULFATE [Suspect]
     Active Substance: ALBUTEROL SULFATE
     Dosage: 2 PUFFS BY EVERY 4-6 HOURS AS NEEDED
     Dates: start: 20230228

REACTIONS (6)
  - Wrong technique in product usage process [Unknown]
  - Product use in unapproved indication [Unknown]
  - Incorrect dose administered by device [Unknown]
  - Cough [Unknown]
  - Drug dose omission by device [Unknown]
  - Device delivery system issue [Unknown]
